FAERS Safety Report 22740238 (Version 2)
Quarter: 2023Q4

REPORT INFORMATION
  Report Type: Spontaneous
  Country: US (occurrence: US)
  Receive Date: 20230723
  Receipt Date: 20231103
  Transmission Date: 20240110
  Serious: No
  Sender: FDA-Public Use
  Company Number: US-BRISTOL-MYERS SQUIBB COMPANY-2023-103383

PATIENT
  Age: 91 Year
  Sex: Female

DRUGS (2)
  1. REBLOZYL [Suspect]
     Active Substance: LUSPATERCEPT-AAMT
     Indication: Myelodysplastic syndrome
     Dosage: DOSE : 1 MG/KG;     FREQ : Q3W
     Route: 058
     Dates: start: 20230505
  2. REBLOZYL [Suspect]
     Active Substance: LUSPATERCEPT-AAMT
     Dosage: DOSE : 1.33 MG/KG;     FREQ : Q3W
     Route: 058
     Dates: start: 20230525, end: 20230615

REACTIONS (5)
  - Fatigue [Not Recovered/Not Resolved]
  - Initial insomnia [Unknown]
  - Decreased appetite [Unknown]
  - Bedridden [Unknown]
  - Haemoglobin decreased [Unknown]
